FAERS Safety Report 8551106 (Version 2)
Quarter: 2014Q1

REPORT INFORMATION
  Report Type: Spontaneous
  Country: CH (occurrence: CH)
  Receive Date: 20120508
  Receipt Date: 20140310
  Transmission Date: 20141002
  Serious: Yes (Death, Other)
  Sender: FDA-Public Use
  Company Number: PHHY2012CH038146

PATIENT
  Age: 64 Year
  Sex: Male

DRUGS (5)
  1. DICLOFENAC [Suspect]
     Indication: SINUSITIS
     Route: 048
  2. AMOXICILLIN + CLAVULANIC ACID [Concomitant]
  3. XYLOMETAZOLINE [Concomitant]
  4. DIAZEPAM [Concomitant]
  5. FLUTICASONE [Concomitant]

REACTIONS (13)
  - Multi-organ failure [Fatal]
  - Haemolytic anaemia [Fatal]
  - Intravascular haemolysis [Fatal]
  - Splenomegaly [Fatal]
  - Lactic acidosis [Unknown]
  - Hypoglycaemia [Unknown]
  - Acute hepatic failure [Unknown]
  - Respiratory failure [Unknown]
  - Back pain [Unknown]
  - Cold sweat [Unknown]
  - Abdominal pain [Unknown]
  - Nausea [Unknown]
  - General physical health deterioration [Unknown]
